FAERS Safety Report 24549397 (Version 1)
Quarter: 2024Q4

REPORT INFORMATION
  Report Type: Spontaneous
  Country: DE (occurrence: None)
  Receive Date: 20241025
  Receipt Date: 20241025
  Transmission Date: 20250114
  Serious: Yes (Hospitalization, Other)
  Sender: INFORLIFE
  Company Number: DE-INFO-20240320

PATIENT
  Age: 70 Year
  Sex: Male

DRUGS (7)
  1. LEVOFLOXACIN [Interacting]
     Active Substance: LEVOFLOXACIN
     Indication: Pneumonia
     Route: 042
  2. LEVOFLOXACIN [Interacting]
     Active Substance: LEVOFLOXACIN
     Indication: Pneumonia
     Dosage: LEVOFLOXACIN THERAPY HAS BEEN CONTINUED IN A HIGHER DOSAGE (500MG/2 AT  DAY).
  3. SIMVASTATIN [Interacting]
     Active Substance: SIMVASTATIN
     Indication: Hypercholesterolaemia
  4. METOPROLOL [Concomitant]
     Active Substance: METOPROLOL
  5. ASPIRIN [Concomitant]
     Active Substance: ASPIRIN
  6. FUROSEMIDE [Concomitant]
     Active Substance: FUROSEMIDE
  7. DIGITOXIN [Concomitant]
     Active Substance: DIGITOXIN

REACTIONS (2)
  - Rhabdomyolysis [Recovered/Resolved]
  - Drug interaction [Recovered/Resolved]
